FAERS Safety Report 10070894 (Version 3)
Quarter: 2014Q2

REPORT INFORMATION
  Report Type: Spontaneous
  Country: US (occurrence: US)
  Receive Date: 20140410
  Receipt Date: 20140625
  Transmission Date: 20141212
  Serious: No
  Sender: FDA-Public Use
  Company Number: US-009507513-1404USA000497

PATIENT
  Age: 82 Year
  Sex: Female
  Weight: 65.76 kg

DRUGS (7)
  1. OXYTROL FOR WOMEN [Suspect]
     Indication: URINARY INCONTINENCE
     Dosage: 1 DF, Q4D
     Route: 062
     Dates: start: 20131218, end: 20140102
  2. LEVOTHYROXINE SODIUM [Concomitant]
     Indication: HYPOTHYROIDISM
     Dosage: 15 MG, QD
  3. FUROSEMIDE [Concomitant]
     Indication: JOINT SWELLING
     Dosage: 40 MG, BID
  4. FUROSEMIDE [Concomitant]
     Indication: URINARY RETENTION
  5. KLOR-CON [Concomitant]
     Indication: BLOOD POTASSIUM DECREASED
     Dosage: 20 MG, BID
  6. PENTOXIFYLLINE [Concomitant]
     Indication: JOINT SWELLING
     Dosage: 20 MG, BID
  7. KEFLEX [Concomitant]
     Indication: URINARY TRACT INFECTION
     Dosage: 25 MG, QD

REACTIONS (3)
  - Drug ineffective [Unknown]
  - Off label use [Unknown]
  - Product quality issue [Unknown]
